FAERS Safety Report 7065051-X (Version None)
Quarter: 2010Q4

REPORT INFORMATION
  Report Type: 
  Country: None (occurrence: None)
  Receive Date: 20101022
  Receipt Date: 20101022
  Transmission Date: 20110411
  Serious: Yes (Other)
  Sender: FDA-Public Use
  Company Number: None

PATIENT
  Age: 38 Year
  Sex: Male
  Weight: 102.0593 kg

DRUGS (3)
  1. OXYCONTIN [Suspect]
     Indication: INTERVERTEBRAL DISC DEGENERATION
     Dosage: 60MG 12 HOURS PO
     Route: 048
     Dates: start: 20100921, end: 20101021
  2. OXYCONTIN [Suspect]
     Indication: SPINAL COLUMN STENOSIS
     Dosage: 60MG 12 HOURS PO
     Route: 048
     Dates: start: 20100921, end: 20101021
  3. OXYCONTIN [Suspect]

REACTIONS (8)
  - CONDITION AGGRAVATED [None]
  - DRUG EFFECT DECREASED [None]
  - DRUG HALF-LIFE REDUCED [None]
  - HEADACHE [None]
  - MEDICATION RESIDUE [None]
  - NO THERAPEUTIC RESPONSE [None]
  - PAIN [None]
  - VOMITING [None]
